FAERS Safety Report 7041685-3 (Version None)
Quarter: 2010Q4

REPORT INFORMATION
  Report Type: 
  Country: None (occurrence: None)
  Receive Date: 20101013
  Receipt Date: 20100305
  Transmission Date: 20110411
  Serious: No
  Sender: FDA-Public Use
  Company Number: US-ASTRAZENECA-2009SE06783

PATIENT
  Age: 79 Year
  Sex: Female
  Weight: 74.8 kg

DRUGS (5)
  1. SYMBICORT [Suspect]
     Indication: ASTHMA
     Dosage: 640 MG
     Route: 055
     Dates: start: 20090101
  2. SYMBICORT [Suspect]
     Indication: CHRONIC OBSTRUCTIVE PULMONARY DISEASE
     Dosage: 640 MG
     Route: 055
     Dates: start: 20090101
  3. NEXIUM [Concomitant]
     Indication: ABDOMINAL DISCOMFORT
  4. VENTOLIN [Concomitant]
     Indication: CHRONIC OBSTRUCTIVE PULMONARY DISEASE
  5. HYZAAR [Concomitant]
     Indication: BLOOD PRESSURE

REACTIONS (12)
  - BACK INJURY [None]
  - BACK PAIN [None]
  - BLOOD PRESSURE INCREASED [None]
  - COUGH [None]
  - MUSCLE SPASMS [None]
  - OROPHARYNGEAL PAIN [None]
  - PHARYNGEAL OEDEMA [None]
  - SWOLLEN TONGUE [None]
  - THROAT IRRITATION [None]
  - VERTIGO [None]
  - VOMITING [None]
  - WEIGHT INCREASED [None]
